FAERS Safety Report 8820821 (Version 1)
Quarter: 2012Q4

REPORT INFORMATION
  Report Type: 
  Country: GB (occurrence: GB)
  Receive Date: 20121002
  Receipt Date: 20121002
  Transmission Date: 20130627
  Serious: Yes (Other)
  Sender: FDA-Public Use
  Company Number: GB-WATSON-2012-16575

PATIENT
  Sex: Male

DRUGS (1)
  1. ALENDRONATE SODIUM- (UNKNOWN) [Suspect]
     Indication: STEROID THERAPY
     Dosage: Dose not stated.
     Route: 065

REACTIONS (1)
  - Wrist fracture [Unknown]
